FAERS Safety Report 17316240 (Version 3)
Quarter: 2021Q1

REPORT INFORMATION
  Report Type: Spontaneous
  Country: US (occurrence: US)
  Receive Date: 20200124
  Receipt Date: 20210210
  Transmission Date: 20210419
  Serious: Yes (Other)
  Sender: FDA-Public Use
  Company Number: US-ASTRAZENECA-2018SF26938

PATIENT
  Age: 18482 Day
  Sex: Female
  Weight: 56.7 kg

DRUGS (60)
  1. NEXIUM [Suspect]
     Active Substance: ESOMEPRAZOLE MAGNESIUM
     Indication: GASTROOESOPHAGEAL REFLUX DISEASE
     Dosage: GENERIC
     Route: 065
     Dates: start: 2017
  2. ACETAMINOPHEN?CODEINE [Concomitant]
     Active Substance: ACETAMINOPHEN\CODEINE PHOSPHATE
  3. ONDANSETRON [Concomitant]
     Active Substance: ONDANSETRON
  4. HYDROCODONE?ACETAMINOPHEN [Concomitant]
     Active Substance: ACETAMINOPHEN\HYDROCODONE
  5. CEPHALEXIN. [Concomitant]
     Active Substance: CEPHALEXIN
  6. CLOBETASOL [Concomitant]
     Active Substance: CLOBETASOL
  7. BUPROPION. [Concomitant]
     Active Substance: BUPROPION
  8. ZYPREXA [Concomitant]
     Active Substance: OLANZAPINE
     Indication: DEPRESSION
     Dates: start: 2010, end: 2018
  9. HYDROXYZINE [Concomitant]
     Active Substance: HYDROXYZINE HYDROCHLORIDE
     Indication: ANXIETY
     Dates: start: 2012
  10. POLYETHYLENE GLYCOL [Concomitant]
     Active Substance: POLYETHYLENE GLYCOLS
  11. CYCLOBENZAPRINE. [Concomitant]
     Active Substance: CYCLOBENZAPRINE
  12. QUETIAPINE. [Concomitant]
     Active Substance: QUETIAPINE
  13. POTASSIUM CHLORIDE. [Concomitant]
     Active Substance: POTASSIUM CHLORIDE
  14. POTASSIUM CITRATE. [Concomitant]
     Active Substance: POTASSIUM CITRATE
  15. ALIGN [Concomitant]
     Active Substance: BIFIDOBACTERIUM LONGUM SUBSP. INFANTIS
  16. AMITIZA [Concomitant]
     Active Substance: LUBIPROSTONE
  17. BENZTROPINE. [Concomitant]
     Active Substance: BENZTROPINE
  18. AMOXICILLINE [Concomitant]
     Active Substance: AMOXICILLIN
  19. BACTROBAN [Concomitant]
     Active Substance: MUPIROCIN\MUPIROCIN CALCIUM
  20. NITROFURANTOIN. [Concomitant]
     Active Substance: NITROFURANTOIN
  21. MELOXICAM. [Concomitant]
     Active Substance: MELOXICAM
  22. CARISOPRODOL. [Concomitant]
     Active Substance: CARISOPRODOL
  23. HYDROCHLOROTHIAZIDE. [Concomitant]
     Active Substance: HYDROCHLOROTHIAZIDE
  24. ACYCLOVIR. [Concomitant]
     Active Substance: ACYCLOVIR
  25. FLUOXETINE [Concomitant]
     Active Substance: FLUOXETINE HYDROCHLORIDE
     Indication: DEPRESSION
     Dates: start: 2016
  26. AMLODIPINE BESYLATE. [Concomitant]
     Active Substance: AMLODIPINE BESYLATE
  27. INVEGA [Concomitant]
     Active Substance: PALIPERIDONE
  28. ALPRAZOLAM. [Concomitant]
     Active Substance: ALPRAZOLAM
  29. IMIQUIMOD. [Concomitant]
     Active Substance: IMIQUIMOD
  30. BUPROPION HYDROCHLORIDE. [Concomitant]
     Active Substance: BUPROPION HYDROCHLORIDE
  31. FLAGYL [Concomitant]
     Active Substance: METRONIDAZOLE\METRONIDAZOLE HYDROCHLORIDE
  32. NEXIUM [Suspect]
     Active Substance: ESOMEPRAZOLE MAGNESIUM
     Indication: GASTROOESOPHAGEAL REFLUX DISEASE
     Route: 048
     Dates: start: 2010, end: 2015
  33. TRAZODONE [Concomitant]
     Active Substance: TRAZODONE HYDROCHLORIDE
     Indication: DEPRESSION
     Dates: start: 2018
  34. METRONIDAZOLE. [Concomitant]
     Active Substance: METRONIDAZOLE
  35. NAPROXEN. [Concomitant]
     Active Substance: NAPROXEN
  36. TRAMADOL HYDROCHLORIDE. [Concomitant]
     Active Substance: TRAMADOL HYDROCHLORIDE
  37. ORPHENADRINE [Concomitant]
     Active Substance: ORPHENADRINE
  38. DOXYCYCLINE HYCLATE. [Concomitant]
     Active Substance: DOXYCYCLINE HYCLATE
  39. TERCONAZOLE. [Concomitant]
     Active Substance: TERCONAZOLE
  40. TETANUS [Concomitant]
     Active Substance: TETANUS ANTITOXIN
  41. AMLODIPINE [Concomitant]
     Active Substance: AMLODIPINE BESYLATE
  42. ONDANSETRON HYDROCHLORIDE. [Concomitant]
     Active Substance: ONDANSETRON HYDROCHLORIDE
  43. BENZOYL PEROXIDE. [Concomitant]
     Active Substance: BENZOYL PEROXIDE
  44. LOZENGE [Concomitant]
     Active Substance: NICOTINE
  45. MULTIVITAMIN [Concomitant]
     Active Substance: VITAMINS
     Indication: VITAL CAPACITY
  46. FLUCONAZOLE. [Concomitant]
     Active Substance: FLUCONAZOLE
  47. GYNE?LOTRIMIN [Concomitant]
     Active Substance: CLOTRIMAZOLE
  48. PHENAZOPYRIDINE. [Concomitant]
     Active Substance: PHENAZOPYRIDINE
  49. FLUVIRIN NOS [Concomitant]
     Active Substance: INFLUENZA VIRUS VACCINE
  50. IBUPROFEN. [Concomitant]
     Active Substance: IBUPROFEN
  51. METHYLPREDNISOLONE. [Concomitant]
     Active Substance: METHYLPREDNISOLONE
  52. CLINDAMYCIN?BENZOYL [Concomitant]
  53. SULFAMETHOXAZOLE?TMP [Concomitant]
     Active Substance: SULFAMETHOXAZOLE\TRIMETHOPRIM
  54. CHLORHEXIDINE [Concomitant]
     Active Substance: CHLORHEXIDINE
  55. ADIPEX [Concomitant]
     Active Substance: PHENTERMINE
  56. NEXIUM [Suspect]
     Active Substance: ESOMEPRAZOLE MAGNESIUM
     Indication: GASTROOESOPHAGEAL REFLUX DISEASE
     Route: 048
     Dates: start: 2006, end: 2017
  57. LISINOPRIL. [Concomitant]
     Active Substance: LISINOPRIL
     Indication: HYPERTENSION
     Dates: start: 2014
  58. CIPROFLOXACIN HYDROCHLORIDE. [Concomitant]
     Active Substance: CIPROFLOXACIN HYDROCHLORIDE
  59. QUETIAPINE FUMARATE. [Concomitant]
     Active Substance: QUETIAPINE FUMARATE
  60. CLINDAMYCIN. [Concomitant]
     Active Substance: CLINDAMYCIN

REACTIONS (2)
  - Renal failure [Unknown]
  - Chronic kidney disease [Not Recovered/Not Resolved]

NARRATIVE: CASE EVENT DATE: 20180102
